FAERS Safety Report 6531436-0 (Version None)
Quarter: 2010Q1

REPORT INFORMATION
  Report Type: 
  Country: None (occurrence: None)
  Receive Date: 20100108
  Receipt Date: 20091125
  Transmission Date: 20100710
  Serious: No
  Sender: FDA-Public Use
  Company Number: A0832617A

PATIENT
  Sex: Female

DRUGS (2)
  1. TYKERB [Suspect]
     Dosage: 250MG FIVE TIMES PER DAY
     Route: 065
     Dates: start: 20091120
  2. XELODA [Concomitant]

REACTIONS (3)
  - DYSGEUSIA [None]
  - HYPOAESTHESIA [None]
  - INSOMNIA [None]
